FAERS Safety Report 7491354-0 (Version None)
Quarter: 2011Q2

REPORT INFORMATION
  Report Type: 
  Country: None (occurrence: None)
  Receive Date: 20110518
  Receipt Date: 20110518
  Transmission Date: 20111010
  Serious: No
  Sender: FDA-Public Use
  Company Number: None

PATIENT
  Age: 66 Year
  Sex: Female

DRUGS (1)
  1. STELARA [Suspect]
     Indication: PSORIASIS
     Dosage: 45MG EVERY 12 WEEKS SQ
     Route: 058
     Dates: start: 20091101, end: 20101001

REACTIONS (2)
  - UTERINE DISORDER [None]
  - BREAST MASS [None]
